FAERS Safety Report 14604233 (Version 6)
Quarter: 2018Q2

REPORT INFORMATION
  Report Type: Report from Study
  Country: BR (occurrence: BR)
  Receive Date: 20180306
  Receipt Date: 20180418
  Transmission Date: 20180711
  Serious: Yes (Other)
  Sender: FDA-Public Use
  Company Number: PHHY2018BR034088

PATIENT
  Age: 59 Year
  Sex: Female

DRUGS (2)
  1. SYSTANE (HYPROMELLOSE 2910 (4000 MPA.S)) [Suspect]
     Active Substance: HYPROMELLOSE 2910 (4000 MPA.S)
     Indication: PRODUCT USED FOR UNKNOWN INDICATION
     Route: 065
  2. SIMBRINZA [Suspect]
     Active Substance: BRIMONIDINE TARTRATE\BRINZOLAMIDE
     Indication: GLAUCOMA
     Dosage: 2 GTT, QD (1 DROP IN MORNING AND 1 DROP IN NIGHT)
     Route: 065
     Dates: start: 201708

REACTIONS (4)
  - Intraocular pressure increased [Unknown]
  - Heart rate irregular [Unknown]
  - Blindness [Unknown]
  - Stress [Unknown]

NARRATIVE: CASE EVENT DATE: 201609
